FAERS Safety Report 4586968-1 (Version None)
Quarter: 2005Q1

REPORT INFORMATION
  Report Type: 
  Country: None (occurrence: None)
  Receive Date: 20050218
  Receipt Date: 20011025
  Transmission Date: 20050727
  Serious: Yes (Hospitalization)
  Sender: FDA-Public Use
  Company Number: US-MERCK-01104492

PATIENT
  Age: 78 Year
  Sex: Female
  Weight: 63 kg

DRUGS (6)
  1. VIOXX [Suspect]
     Indication: ARTHRALGIA
     Route: 048
     Dates: start: 20020620
  2. VIOXX [Suspect]
     Route: 048
     Dates: start: 20000101, end: 20010401
  3. VIOXX [Suspect]
     Indication: PAIN IN EXTREMITY
     Route: 048
     Dates: start: 20010101, end: 20010421
  4. VIOXX [Suspect]
     Route: 048
     Dates: start: 20020620
  5. VIOXX [Suspect]
     Route: 048
     Dates: start: 20000101, end: 20010401
  6. VIOXX [Suspect]
     Route: 048
     Dates: start: 20010101, end: 20010421

REACTIONS (30)
  - ARTHRALGIA [None]
  - BLOOD CHOLESTEROL INCREASED [None]
  - BLOOD GLUCOSE INCREASED [None]
  - BLOOD PRESSURE FLUCTUATION [None]
  - BLOOD TRIGLYCERIDES INCREASED [None]
  - BURSITIS [None]
  - CALCINOSIS [None]
  - CARDIOVASCULAR DISORDER [None]
  - CAROTID ARTERY STENOSIS [None]
  - CELLULITIS [None]
  - CEREBROVASCULAR ACCIDENT [None]
  - CHONDROCALCINOSIS [None]
  - DIZZINESS [None]
  - EXTRASYSTOLES [None]
  - GRANULOMA [None]
  - HYPERLIPIDAEMIA [None]
  - HYPERTENSION [None]
  - JOINT EFFUSION [None]
  - LOW DENSITY LIPOPROTEIN INCREASED [None]
  - OEDEMA [None]
  - OSTEOARTHRITIS [None]
  - OSTEOPOROSIS [None]
  - PAIN IN EXTREMITY [None]
  - PERIPHERAL VASCULAR DISORDER [None]
  - RENAL FAILURE [None]
  - TENDON CALCIFICATION [None]
  - TENDON INJURY [None]
  - TENDONITIS [None]
  - VENTRICULAR EXTRASYSTOLES [None]
  - VENTRICULAR HYPERTROPHY [None]
